FAERS Safety Report 4747512-9 (Version None)
Quarter: 2005Q3

REPORT INFORMATION
  Report Type: 
  Country: None (occurrence: None)
  Receive Date: 20050818
  Receipt Date: 20050809
  Transmission Date: 20060218
  Serious: Yes (Hospitalization)
  Sender: FDA-Public Use
  Company Number: PK-BRISTOL-MYERS SQUIBB COMPANY-13068655

PATIENT
  Age: 50 Year
  Sex: Female

DRUGS (3)
  1. PACLITAXEL [Suspect]
     Indication: BREAST CANCER METASTATIC
     Route: 042
     Dates: start: 20050414
  2. PLACEBO [Suspect]
     Indication: BREAST CANCER METASTATIC
     Route: 048
     Dates: start: 20050413
  3. GABAPENTIN [Concomitant]

REACTIONS (1)
  - DIARRHOEA [None]
